FAERS Safety Report 12417901 (Version 3)
Quarter: 2016Q3

REPORT INFORMATION
  Report Type: Spontaneous
  Country: DE (occurrence: DE)
  Receive Date: 20160531
  Receipt Date: 20160817
  Transmission Date: 20161109
  Serious: Yes (Death, Hospitalization, Other)
  Sender: FDA-Public Use
  Company Number: DE-AMGEN-DEUSP2016068295

PATIENT
  Sex: Female

DRUGS (11)
  1. VINCRISTINE [Suspect]
     Active Substance: VINCRISTINE
     Indication: B-CELL LYMPHOMA
     Dosage: 2 MG, 1 IN 1 D
     Route: 042
     Dates: start: 20160421, end: 20160421
  2. LEUCOVORIN. [Concomitant]
     Active Substance: LEUCOVORIN
     Indication: B-CELL LYMPHOMA
     Dosage: 30-150 MG MTX LEVEL FOR 4 DAYS
     Route: 042
     Dates: start: 20160306, end: 20160309
  3. DOXORUBICIN [Suspect]
     Active Substance: DOXORUBICIN
     Indication: B-CELL LYMPHOMA
     Dosage: 87 MG, 1 IN 1 D
     Route: 042
     Dates: start: 20160421, end: 20160421
  4. PREDNISOLONE. [Suspect]
     Active Substance: PREDNISOLONE
     Indication: B-CELL LYMPHOMA
     Dosage: 100 MG, 1 IN 1 D
     Route: 048
     Dates: start: 20160227, end: 20160304
  5. METHOTREXATE DISODIUM [Concomitant]
     Active Substance: METHOTREXATE SODIUM
     Indication: B-CELL LYMPHOMA
     Dosage: 1500 MG, 1 IN 1 D
     Route: 042
     Dates: start: 20160306, end: 20160306
  6. RITUXIMAB [Suspect]
     Active Substance: RITUXIMAB
     Indication: B-CELL LYMPHOMA
     Dosage: 700 MG, 1 IN 1 D (LAST DOSE PRIOR TO SAE)
     Route: 042
     Dates: start: 20160304, end: 20160304
  7. CYCLOPHOSPHAMIDE. [Suspect]
     Active Substance: CYCLOPHOSPHAMIDE
     Indication: B-CELL LYMPHOMA
     Dosage: 1300 MG, 1 IN 1 D
     Route: 042
     Dates: start: 20160421, end: 20160421
  8. FILGRASTIM [Suspect]
     Active Substance: FILGRASTIM
     Indication: B-CELL LYMPHOMA
     Dosage: 6 MG, 1 IN 1 D
     Route: 058
     Dates: start: 20160424, end: 20160424
  9. PEGFILGRASTIM [Suspect]
     Active Substance: PEGFILGRASTIM
     Indication: B-CELL LYMPHOMA
     Dosage: 6 MG, 1 IN 1 D, FOR 1 DAY
     Route: 058
     Dates: start: 20160625, end: 20160625
  10. RITUXIMAB [Suspect]
     Active Substance: RITUXIMAB
     Dosage: 650 MG, 1 IN 1 D (MOST RECENT DOSE PRIOR TO RECURRENT INFECTION WITH FEVER)
     Route: 042
     Dates: start: 20160420, end: 20160420
  11. PREDNISOLONE. [Suspect]
     Active Substance: PREDNISOLONE
     Dosage: 100 MG, 1 IN 1 D
     Route: 048
     Dates: start: 20160421, end: 20160425

REACTIONS (5)
  - Central nervous system lymphoma [Fatal]
  - Febrile infection [Recovered/Resolved]
  - Spinal corpectomy [Recovered/Resolved]
  - Vertebral body replacement [Recovered/Resolved]
  - Hemiparesis [Recovered/Resolved]

NARRATIVE: CASE EVENT DATE: 20160310
